FAERS Safety Report 14096329 (Version 1)
Quarter: 2017Q4

REPORT INFORMATION
  Report Type: Spontaneous
  Country: JP (occurrence: JP)
  Receive Date: 20171017
  Receipt Date: 20171017
  Transmission Date: 20180321
  Serious: Yes (Hospitalization, Other)
  Sender: FDA-Public Use
  Company Number: JP-ROCHE-1924977

PATIENT
  Age: 17 Year
  Sex: Female

DRUGS (5)
  1. CELLCEPT [Suspect]
     Active Substance: MYCOPHENOLATE MOFETIL\MYCOPHENOLATE MOFETIL HYDROCHLORIDE
     Indication: NEPHROTIC SYNDROME
     Dosage: FRACTIONATION DOSE UNCERTAIN FREQUENCY AND DOSE INTERVAL UNCERTAINTY.
     Route: 048
  2. MIZORIBINE [Concomitant]
     Active Substance: MIZORIBINE
     Dosage: DOSAGE IS UNCERTAIN.
     Route: 065
  3. PREDONINE [Suspect]
     Active Substance: PREDNISOLONE
     Indication: NEPHROTIC SYNDROME
     Route: 048
  4. RITUXAN [Suspect]
     Active Substance: RITUXIMAB
     Indication: NEPHROTIC SYNDROME
     Dosage: 10MG/ML
     Route: 041
     Dates: start: 20161201, end: 20161201
  5. CICLOSPORIN [Suspect]
     Active Substance: CYCLOSPORINE
     Indication: NEPHROTIC SYNDROME
     Route: 065

REACTIONS (6)
  - Abdominal pain [Unknown]
  - Off label use [Unknown]
  - Campylobacter sepsis [Recovered/Resolved]
  - Depressed level of consciousness [Unknown]
  - Campylobacter infection [Recovered/Resolved]
  - Vomiting [Unknown]

NARRATIVE: CASE EVENT DATE: 201612
